FAERS Safety Report 4756405-2 (Version None)
Quarter: 2005Q3

REPORT INFORMATION
  Report Type: 
  Country: None (occurrence: None)
  Receive Date: 20050830
  Receipt Date: 20050615
  Transmission Date: 20060218
  Serious: No
  Sender: FDA-Public Use
  Company Number: US-GLAXOSMITHKLINE-A0562796A

PATIENT
  Sex: Female

DRUGS (11)
  1. WELLBUTRIN [Suspect]
     Indication: DEPRESSION
     Dosage: 300MG PER DAY
     Route: 048
     Dates: start: 20050401
  2. DESYREL [Concomitant]
  3. KELP [Concomitant]
  4. SELENIUM SULFIDE [Concomitant]
  5. VITAMIN B COMPLEX CAP [Concomitant]
  6. FOLIC ACID [Concomitant]
  7. PROVIGIL [Concomitant]
  8. LORTAB [Concomitant]
  9. LASIX [Concomitant]
  10. PHENERGAN [Concomitant]
  11. XANAX [Concomitant]

REACTIONS (2)
  - ANXIETY [None]
  - STOMACH DISCOMFORT [None]
